FAERS Safety Report 19265185 (Version 2)
Quarter: 2021Q2

REPORT INFORMATION
  Report Type: Report from Study
  Country: DE (occurrence: DE)
  Receive Date: 20210517
  Receipt Date: 20210603
  Transmission Date: 20210717
  Serious: Yes (Death)
  Sender: FDA-Public Use
  Company Number: DE-PFIZER INC-2021523109

PATIENT
  Age: 51 Year
  Sex: Male

DRUGS (2)
  1. CISPLATIN. [Suspect]
     Active Substance: CISPLATIN
     Indication: OESOPHAGEAL SQUAMOUS CELL CARCINOMA
     Dosage: 30 MG/M2, CYCLIC, ON DAY 1, 8, 22
     Dates: start: 20090113
  2. CAMPTO [Suspect]
     Active Substance: IRINOTECAN
     Indication: OESOPHAGEAL SQUAMOUS CELL CARCINOMA
     Dosage: 60 MG/M2, CYCLIC, ON DAY 1, 8, 22
     Dates: start: 20090113

REACTIONS (1)
  - No adverse event [Unknown]

NARRATIVE: CASE EVENT DATE: 20090623
